FAERS Safety Report 6649522-3 (Version None)
Quarter: 2010Q1

REPORT INFORMATION
  Report Type: 
  Country: None (occurrence: None)
  Receive Date: 20100324
  Receipt Date: 20100324
  Transmission Date: 20100710
  Serious: No
  Sender: FDA-Public Use
  Company Number: None

PATIENT
  Sex: Male
  Weight: 87.3 kg

DRUGS (3)
  1. CYTARABINE [Suspect]
     Dosage: 1435
     Dates: end: 20100118
  2. DAUNORUBICIN HCL [Suspect]
     Dosage: 555 MG
     Dates: end: 20100114
  3. ETOPOSIDE [Suspect]
     Dosage: 615 MG
     Dates: end: 20100114

REACTIONS (1)
  - HYPOPHOSPHATAEMIA [None]
